FAERS Safety Report 5542100-9 (Version None)
Quarter: 2007Q4

REPORT INFORMATION
  Report Type: 
  Country: None (occurrence: None)
  Receive Date: 20071210
  Receipt Date: 20070206
  Transmission Date: 20080405
  Serious: No
  Sender: FDA-Public Use
  Company Number: US-AMGEN-US210014

PATIENT
  Sex: Female
  Weight: 65.8 kg

DRUGS (3)
  1. ENBREL [Suspect]
     Indication: RHEUMATOID ARTHRITIS
     Route: 058
     Dates: start: 20011101, end: 20070114
  2. METHOTREXATE [Concomitant]
     Route: 065
     Dates: start: 20000322
  3. PREDNISONE [Concomitant]
     Route: 065
     Dates: start: 20020101

REACTIONS (3)
  - BRONCHITIS [None]
  - SINUSITIS [None]
  - UPPER RESPIRATORY TRACT INFECTION [None]
